FAERS Safety Report 7396453-X (Version None)
Quarter: 2011Q2

REPORT INFORMATION
  Report Type: 
  Country: None (occurrence: None)
  Receive Date: 20110406
  Receipt Date: 20110309
  Transmission Date: 20111010
  Serious: Yes (Hospitalization, Other)
  Sender: FDA-Public Use
  Company Number: US-BAYER-201037620NA

PATIENT
  Sex: Female
  Weight: 45.351 kg

DRUGS (5)
  1. TORADOL [Concomitant]
     Indication: NEPHROLITHIASIS
     Dosage: 10 MG, PRN
  2. KEFLEX [Concomitant]
  3. FLAGYL [Concomitant]
  4. DOXYCYCLINE AL [Concomitant]
     Indication: ACNE
     Dosage: 100 MG, CONT
  5. YAZ [Suspect]
     Indication: CONTRACEPTION
     Route: 048
     Dates: start: 20071201, end: 20090615

REACTIONS (9)
  - CHOLECYSTITIS [None]
  - CHOLECYSTITIS ACUTE [None]
  - NAUSEA [None]
  - BILIARY DYSKINESIA [None]
  - ABDOMINAL PAIN UPPER [None]
  - GALLBLADDER DISORDER [None]
  - DIARRHOEA [None]
  - VOMITING [None]
  - PAIN [None]
